FAERS Safety Report 5824575-0 (Version None)
Quarter: 2008Q3

REPORT INFORMATION
  Report Type: 
  Country: None (occurrence: None)
  Receive Date: 20080728
  Receipt Date: 20080718
  Transmission Date: 20090109
  Serious: Yes (Other)
  Sender: FDA-Public Use
  Company Number: JP-MERCK-0807USA02829

PATIENT
  Age: 39 Year
  Sex: Male

DRUGS (7)
  1. PRIMAXIN [Suspect]
     Route: 042
     Dates: start: 20080711, end: 20080711
  2. PRIMAXIN [Suspect]
     Route: 042
     Dates: start: 20050518, end: 20050529
  3. PRIMAXIN [Suspect]
     Route: 042
     Dates: start: 20050825, end: 20050827
  4. PRIMAXIN [Suspect]
     Route: 042
     Dates: start: 20061003, end: 20061006
  5. PRIMAXIN [Suspect]
     Route: 042
     Dates: start: 20061028, end: 20061028
  6. LOXONIN [Suspect]
     Route: 048
     Dates: start: 20080711
  7. MUCOSTA [Concomitant]
     Route: 048
     Dates: start: 20080711

REACTIONS (2)
  - ABDOMINAL PAIN [None]
  - SHOCK [None]
